FAERS Safety Report 11080495 (Version 1)
Quarter: 2015Q2

REPORT INFORMATION
  Report Type: Spontaneous
  Country: US (occurrence: US)
  Receive Date: 20150501
  Receipt Date: 20150501
  Transmission Date: 20150821
  Serious: Yes (Hospitalization)
  Sender: FDA-Public Use
  Company Number: PHHY2015US051204

PATIENT
  Age: 2 Year
  Sex: Female

DRUGS (2)
  1. MEMANTINE HYDROCHLORIDE [Suspect]
     Active Substance: MEMANTINE HYDROCHLORIDE
     Indication: PRODUCT USED FOR UNKNOWN INDICATION
     Dosage: 10 MG,
     Route: 065
  2. DONEPEZIL [Suspect]
     Active Substance: DONEPEZIL
     Indication: PRODUCT USED FOR UNKNOWN INDICATION
     Dosage: 20 MG, UNK
     Route: 065

REACTIONS (8)
  - Hyperventilation [Recovering/Resolving]
  - Lethargy [Recovering/Resolving]
  - Dystonia [Recovering/Resolving]
  - Accidental overdose [Recovering/Resolving]
  - Eye movement disorder [Recovering/Resolving]
  - Encephalopathy [Recovering/Resolving]
  - Agitation [Recovering/Resolving]
  - Hallucination, visual [Recovering/Resolving]
